FAERS Safety Report 11332909 (Version 2)
Quarter: 2015Q3

REPORT INFORMATION
  Report Type: Spontaneous
  Country: US (occurrence: US)
  Receive Date: 20150803
  Receipt Date: 20150831
  Transmission Date: 20151125
  Serious: Yes (Hospitalization, Other)
  Sender: FDA-Public Use
  Company Number: US-ELI_LILLY_AND_COMPANY-US200812002263

PATIENT
  Sex: Female
  Weight: 35.37 kg

DRUGS (6)
  1. KLONOPIN [Concomitant]
     Active Substance: CLONAZEPAM
     Dates: start: 200811
  2. ZYPREXA [Suspect]
     Active Substance: OLANZAPINE
     Indication: HALLUCINATIONS, MIXED
     Dates: start: 2006
  3. CYMBALTA [Suspect]
     Active Substance: DULOXETINE HYDROCHLORIDE
     Indication: BORDERLINE PERSONALITY DISORDER
     Dosage: UNK, UNK
     Dates: start: 2006
  4. TRAZODONE [Concomitant]
     Active Substance: TRAZODONE HYDROCHLORIDE
  5. HALDOL [Concomitant]
     Active Substance: HALOPERIDOL
     Dosage: UNK, AS NEEDED
  6. RISPERDAL [Concomitant]
     Active Substance: RISPERIDONE

REACTIONS (3)
  - Decreased appetite [Recovering/Resolving]
  - Weight increased [Recovered/Resolved]
  - Syncope [Unknown]

NARRATIVE: CASE EVENT DATE: 2006
